FAERS Safety Report 20470193 (Version 2)
Quarter: 2022Q1

REPORT INFORMATION
  Report Type: Spontaneous
  Country: FR (occurrence: FR)
  Receive Date: 20220214
  Receipt Date: 20220310
  Transmission Date: 20220423
  Serious: Yes (Other)
  Sender: FDA-Public Use
  Company Number: FR-002147023-NVSC2022FR017872

PATIENT
  Age: 62 Year
  Sex: Male

DRUGS (2)
  1. ATORVASTATIN CALCIUM [Suspect]
     Active Substance: ATORVASTATIN CALCIUM
     Dosage: UNK
     Route: 065
     Dates: start: 202001, end: 202112
  2. EXFORGE [Suspect]
     Active Substance: AMLODIPINE BESYLATE\VALSARTAN
     Indication: Hypertension
     Dosage: 1 DF, 1X/DAY
     Route: 065
     Dates: start: 202001

REACTIONS (7)
  - Face oedema [Unknown]
  - Arthralgia [Unknown]
  - COVID-19 [Unknown]
  - Polymyalgia rheumatica [Unknown]
  - Rash [Unknown]
  - Muscle spasms [Unknown]
  - Lip oedema [Unknown]

NARRATIVE: CASE EVENT DATE: 20211201
